FAERS Safety Report 7500293-8 (Version None)
Quarter: 2011Q2

REPORT INFORMATION
  Report Type: 
  Country: None (occurrence: None)
  Receive Date: 20110524
  Receipt Date: 20110127
  Transmission Date: 20111010
  Serious: Yes (Hospitalization, Other)
  Sender: FDA-Public Use
  Company Number: US-BAYER-201038062NA

PATIENT
  Age: 21 Year
  Sex: Female
  Weight: 65.76 kg

DRUGS (15)
  1. YASMIN [Suspect]
     Indication: CONTRACEPTION
     Dosage: UNK
  2. PHENOBARBITAL TAB [Concomitant]
     Dosage: UNK
     Dates: start: 20070101, end: 20080101
  3. DIAZEPAM [Concomitant]
     Indication: PRODUCT USED FOR UNKNOWN INDICATION
  4. NSAID'S [Concomitant]
     Dosage: UNK
     Dates: start: 20070101, end: 20080101
  5. YAZ [Suspect]
     Indication: CONTRACEPTION
     Dosage: UNK
     Dates: start: 20070601, end: 20071201
  6. NORTRIPTYLINE HCL [Concomitant]
     Indication: PRODUCT USED FOR UNKNOWN INDICATION
  7. CARBAMAZEPINE [Concomitant]
     Indication: MULTIPLE SCLEROSIS
  8. VITAMIN B COMPLEX CAP [Concomitant]
     Indication: PRODUCT USED FOR UNKNOWN INDICATION
  9. ACETAMINOPHEN AND HYDROCODONE BITARTRATE [Concomitant]
     Indication: PRODUCT USED FOR UNKNOWN INDICATION
  10. YAZ [Suspect]
     Indication: ACNE
  11. CONCERTA [Concomitant]
  12. BACLOFEN [Concomitant]
     Indication: PRODUCT USED FOR UNKNOWN INDICATION
  13. YASMIN [Suspect]
     Indication: ACNE
  14. DROSPIRENONE AND ETHINYL ESTRADIOL [Suspect]
     Indication: ACNE
  15. LEXAPRO [Concomitant]
     Dosage: 5 MG, UNK
     Route: 048

REACTIONS (6)
  - NEPHROLITHIASIS [None]
  - ABDOMINAL PAIN UPPER [None]
  - BILIARY DYSKINESIA [None]
  - INJURY [None]
  - ABDOMINAL PAIN [None]
  - NAUSEA [None]
